FAERS Safety Report 16435300 (Version 1)
Quarter: 2019Q2

REPORT INFORMATION
  Report Type: Report from Study
  Country: US (occurrence: US)
  Receive Date: 20190614
  Receipt Date: 20190614
  Transmission Date: 20190711
  Serious: Yes (Death, Life-Threatening, Hospitalization, Other)
  Sender: FDA-Public Use
  Company Number: US-BRISTOL-MYERS SQUIBB COMPANY-BMS-2019-057076

PATIENT
  Age: 57 Year
  Sex: Male
  Weight: 73.6 kg

DRUGS (10)
  1. METOPROLOL TARTRATE. [Concomitant]
     Active Substance: METOPROLOL TARTRATE
     Indication: PRODUCT USED FOR UNKNOWN INDICATION
     Dosage: 1 TAB, BID
     Route: 048
  2. ASPIRIN [ACETYLSALICYLIC ACID] [Concomitant]
     Active Substance: ASPIRIN
     Indication: PRODUCT USED FOR UNKNOWN INDICATION
     Dosage: 1 TAB, QD
     Route: 048
  3. ZOFRAN [Concomitant]
     Active Substance: ONDANSETRON HYDROCHLORIDE
     Indication: VOMITING
     Dosage: 1 TAB, TID, AS NEEDED
     Route: 048
  4. CYCLOBENZAPRINE. [Concomitant]
     Active Substance: CYCLOBENZAPRINE
     Indication: PRODUCT USED FOR UNKNOWN INDICATION
     Dosage: 1 TAB, TID
     Route: 048
  5. NIVOLUMAB [Suspect]
     Active Substance: NIVOLUMAB
     Indication: SMALL CELL LUNG CANCER RECURRENT
     Dosage: 74 MILLIGRAM
     Route: 042
     Dates: start: 20190517, end: 20190517
  6. IPILIMUMAB [Suspect]
     Active Substance: IPILIMUMAB
     Indication: SMALL CELL LUNG CANCER RECURRENT
     Dosage: 221 MILLIGRAM
     Route: 042
     Dates: start: 20190517, end: 20190517
  7. WARFARIN [Concomitant]
     Active Substance: WARFARIN
     Indication: PRODUCT USED FOR UNKNOWN INDICATION
     Dosage: 0.5 TAB, QD, EXCEPT ON WEDNESDAY, TAKE 1 TABLET ON WEDNESDAYS
     Route: 048
  8. ALBUTEROL [SALBUTAMOL] [Concomitant]
     Active Substance: ALBUTEROL
     Indication: DYSPNOEA
     Dosage: 1 DOSAGE FORM = 90 MCG/INH INHALATION AEROSOL, 2 PUFF(S) INHALED 4 TIMES A DAY, AS NEEDED
  9. OLANZAPINE. [Concomitant]
     Active Substance: OLANZAPINE
     Indication: PRODUCT USED FOR UNKNOWN INDICATION
     Dosage: 1 TAB, QD
     Route: 048
  10. PLINABULIN [Suspect]
     Active Substance: PLINABULIN
     Indication: SMALL CELL LUNG CANCER RECURRENT
     Dosage: 37 MILLIGRAM
     Route: 042
     Dates: start: 20190517, end: 20190517

REACTIONS (3)
  - Diarrhoea [Unknown]
  - Acute respiratory failure [Unknown]
  - Hypovolaemic shock [Fatal]

NARRATIVE: CASE EVENT DATE: 20190527
